FAERS Safety Report 22380427 (Version 1)
Quarter: 2023Q2

REPORT INFORMATION
  Report Type: Spontaneous
  Country: IN (occurrence: IN)
  Receive Date: 20230529
  Receipt Date: 20230529
  Transmission Date: 20230721
  Serious: Yes (Hospitalization, Other)
  Sender: FDA-Public Use
  Company Number: IN-JAZZ PHARMACEUTICALS-2023-IN-011217

PATIENT
  Age: 7 Year
  Sex: Female

DRUGS (3)
  1. ASPARAGINASE [Suspect]
     Active Substance: ASPARAGINASE
     Indication: Acute lymphocytic leukaemia
  2. VINCRISTINE [Suspect]
     Active Substance: VINCRISTINE
     Indication: Acute lymphocytic leukaemia
  3. DEXAMETHASONE [Suspect]
     Active Substance: DEXAMETHASONE
     Indication: Acute lymphocytic leukaemia

REACTIONS (9)
  - Systemic candida [Unknown]
  - Myositis [Unknown]
  - Subcutaneous abscess [Unknown]
  - Immune reconstitution inflammatory syndrome [Unknown]
  - Febrile neutropenia [Unknown]
  - Tachypnoea [Unknown]
  - Respiratory distress [Unknown]
  - Haematochezia [Unknown]
  - Tachycardia [Unknown]
